FAERS Safety Report 20086099 (Version 3)
Quarter: 2021Q4

REPORT INFORMATION
  Report Type: Spontaneous
  Country: US (occurrence: US)
  Receive Date: 20211118
  Receipt Date: 20211122
  Transmission Date: 20220303
  Serious: No
  Sender: FDA-Public Use
  Company Number: US-JNJFOC-20211122079

PATIENT
  Age: 30 Year
  Sex: Female
  Weight: 64.86 kg

DRUGS (4)
  1. TYLENOL [Suspect]
     Active Substance: ACETAMINOPHEN
     Indication: Headache
     Route: 065
  2. IBUPROFEN [Suspect]
     Active Substance: IBUPROFEN
     Indication: Headache
     Route: 065
  3. COVID-19 VACCINE [Concomitant]
     Indication: Immunisation
     Dosage: FIRST DOSE
     Route: 065
     Dates: start: 20210818
  4. COVID-19 VACCINE [Concomitant]
     Dosage: SECOND DOSE
     Route: 065
     Dates: start: 20210908

REACTIONS (1)
  - Drug ineffective [Unknown]
